FAERS Safety Report 10229569 (Version 2)
Quarter: 2014Q2

REPORT INFORMATION
  Report Type: Spontaneous
  Country: VE (occurrence: VE)
  Receive Date: 20140611
  Receipt Date: 20140611
  Transmission Date: 20141212
  Serious: Yes (Other)
  Sender: FDA-Public Use
  Company Number: VE-BAYER-2014-075146

PATIENT
  Age: 2 Year
  Sex: Male

DRUGS (2)
  1. KOGENATE FS 500 UI [Suspect]
     Indication: FACTOR VIII DEFICIENCY
     Dosage: 500 IU, OW
     Dates: start: 20140314
  2. KOGENATE FS 500 UI [Suspect]
     Indication: FACTOR VIII DEFICIENCY
     Dosage: 500 IU, OW
     Dates: start: 20140514

REACTIONS (2)
  - Anti factor VIII antibody positive [Not Recovered/Not Resolved]
  - Haemorrhage [None]
